FAERS Safety Report 8621926-9 (Version None)
Quarter: 2012Q3

REPORT INFORMATION
  Report Type: 
  Country: None (occurrence: None)
  Receive Date: 20120822
  Receipt Date: 20120822
  Transmission Date: 20120928
  Serious: Yes (Disabling, Other)
  Sender: FDA-Public Use
  Company Number: None

PATIENT
  Age: 48 Year
  Sex: Female
  Weight: 70.7611 kg

DRUGS (2)
  1. AVELOX [Suspect]
     Indication: BRONCHITIS
     Dosage: 1 PILL DAILY PO
     Route: 048
     Dates: start: 20120817, end: 20120818
  2. AVELOX [Suspect]
     Indication: SINUSITIS
     Dosage: 1 PILL DAILY PO
     Route: 048
     Dates: start: 20120817, end: 20120818

REACTIONS (3)
  - COUGH [None]
  - BACK PAIN [None]
  - INSOMNIA [None]
